FAERS Safety Report 5174907-4 (Version None)
Quarter: 2006Q4

REPORT INFORMATION
  Report Type: 
  Country: None (occurrence: None)
  Receive Date: 20061206
  Receipt Date: 20061123
  Transmission Date: 20070319
  Serious: Yes (Hospitalization)
  Sender: FDA-Public Use
  Company Number: 2006145267

PATIENT
  Age: 70 Year
  Sex: Male
  Weight: 92 kg

DRUGS (4)
  1. SUTENT [Suspect]
     Indication: METASTATIC RENAL CELL CARCINOMA
     Dosage: 50 MG (50 MG, 1 IN 1 D), ORAL
     Route: 048
     Dates: start: 20061026, end: 20061123
  2. ENALAPRIL MALEATE [Concomitant]
  3. AMLODIPINE [Concomitant]
  4. ESIDRIX [Concomitant]

REACTIONS (1)
  - RENAL FAILURE ACUTE [None]
